FAERS Safety Report 4902176-6 (Version None)
Quarter: 2006Q1

REPORT INFORMATION
  Report Type: 
  Country: None (occurrence: None)
  Receive Date: 20060206
  Receipt Date: 20060130
  Transmission Date: 20060701
  Serious: Yes (Other)
  Sender: FDA-Public Use
  Company Number: JP-JNJFOC-20051205005

PATIENT
  Age: 74 Year
  Sex: Male

DRUGS (5)
  1. TAVANIC [Suspect]
     Indication: BRONCHITIS
     Route: 048
     Dates: start: 20051121, end: 20051128
  2. PROVASIN TAB [Concomitant]
     Indication: HYPERTENSION
     Route: 048
  3. SIMVAHEXAL [Concomitant]
     Route: 048
  4. ARELIX [Concomitant]
     Indication: HYPERTENSION
     Route: 048
  5. ASPIRIN [Concomitant]
     Indication: CORONARY ARTERY DISEASE
     Route: 048

REACTIONS (3)
  - MUSCLE RUPTURE [None]
  - TENDON DISORDER [None]
  - TENDONITIS [None]
